FAERS Safety Report 7069387-8 (Version None)
Quarter: 2010Q4

REPORT INFORMATION
  Report Type: 
  Country: None (occurrence: None)
  Receive Date: 20101028
  Receipt Date: 20101014
  Transmission Date: 20110411
  Serious: Yes (Other)
  Sender: FDA-Public Use
  Company Number: US-AMGEN-QUU433800

PATIENT

DRUGS (10)
  1. NPLATE [Suspect]
     Indication: IDIOPATHIC THROMBOCYTOPENIC PURPURA
     Dosage: 25 A?G, UNK
     Dates: start: 20090120, end: 20091205
  2. NPLATE [Suspect]
  3. NPLATE [Suspect]
  4. NPLATE [Suspect]
  5. NPLATE [Suspect]
  6. NPLATE [Suspect]
  7. NPLATE [Suspect]
  8. NPLATE [Suspect]
  9. NPLATE [Suspect]
  10. DEXTROPROPOXYPHENE NAPSILATE W/ ACETAMINOPHEN [Concomitant]
     Dosage: UNK UNK, UNK
     Dates: start: 20090114

REACTIONS (1)
  - DRUG INEFFECTIVE [None]
